FAERS Safety Report 21328888 (Version 4)
Quarter: 2023Q1

REPORT INFORMATION
  Report Type: Report from Study
  Country: JP (occurrence: JP)
  Receive Date: 20220913
  Receipt Date: 20230130
  Transmission Date: 20230417
  Serious: Yes (Hospitalization, Other)
  Sender: FDA-Public Use
  Company Number: JP-TEVA-775516ROM

PATIENT
  Age: 26 Year
  Sex: Female

DRUGS (5)
  1. GLATIRAMER ACETATE [Suspect]
     Active Substance: GLATIRAMER ACETATE
     Indication: Relapsing-remitting multiple sclerosis
     Dosage: 20 MILLIGRAM DAILY;
     Route: 058
     Dates: start: 20161219, end: 20170815
  2. GLATIRAMER ACETATE [Suspect]
     Active Substance: GLATIRAMER ACETATE
     Dosage: DAILY SELF-INJECTION AT EITHER OF 2 SITES IN THE UPPER BUTTOCKS
     Route: 058
     Dates: start: 20180420
  3. MAGNESIUM OXIDE [Concomitant]
     Active Substance: MAGNESIUM OXIDE
     Indication: Constipation
     Dosage: 1500 MILLIGRAM DAILY;
     Dates: start: 20171030
  4. ACETAMINOPHEN [Concomitant]
     Active Substance: ACETAMINOPHEN
     Indication: Headache
     Dosage: 400 MILLIGRAM DAILY;
     Dates: start: 20171030
  5. HYDROCORTISONE [Concomitant]
     Active Substance: HYDROCORTISONE
     Indication: Haemorrhoids
     Dosage: 2 GRAM DAILY;
     Dates: start: 20171211

REACTIONS (11)
  - Oligohydramnios [Unknown]
  - Lymphadenopathy [Recovered/Resolved]
  - Injection site induration [Recovered/Resolved]
  - Live birth [Unknown]
  - Neonatal hypoxia [Unknown]
  - Injection site pruritus [Recovering/Resolving]
  - Lymphadenopathy [Recovered/Resolved]
  - Maternal exposure during pregnancy [Unknown]
  - Palpitations [Recovered/Resolved]
  - Mass [Recovered/Resolved]
  - Glossodynia [Recovered/Resolved]

NARRATIVE: CASE EVENT DATE: 20161220
